FAERS Safety Report 7878292-6 (Version None)
Quarter: 2011Q4

REPORT INFORMATION
  Report Type: 
  Country: None (occurrence: None)
  Receive Date: 20111101
  Receipt Date: 20111018
  Transmission Date: 20120403
  Serious: Yes (Other)
  Sender: FDA-Public Use
  Company Number: US-JNJFOC-20111010140

PATIENT
  Age: 51 Year
  Sex: Male
  Weight: 77.11 kg

DRUGS (8)
  1. ROGAINE [Suspect]
     Route: 061
  2. ROGAINE EXTRA STRENGTH (FOR MEN) [Suspect]
     Route: 061
  3. PROPECIA [Suspect]
     Indication: PRODUCT USED FOR UNKNOWN INDICATION
     Dosage: FOR EIGHT YEARS
     Route: 065
  4. ALL OTHER THERAPEUTIC PRODUCTS [Concomitant]
     Indication: PRODUCT USED FOR UNKNOWN INDICATION
     Route: 065
     Dates: end: 20110701
  5. ROGAINE EXTRA STRENGTH (FOR MEN) [Suspect]
     Indication: ALOPECIA
     Dosage: 1/2 CAPFUL  TWICE A DAY
     Route: 061
     Dates: start: 20100701, end: 20110701
  6. XANAX [Concomitant]
     Indication: SLEEP DISORDER THERAPY
     Route: 065
  7. ROGAINE [Suspect]
     Indication: ALOPECIA
     Route: 061
  8. XANAX [Concomitant]
     Indication: ANXIETY
     Route: 065

REACTIONS (3)
  - ALOPECIA [None]
  - HEPATITIS A [None]
  - APPLICATION SITE PRURITUS [None]
